FAERS Safety Report 6686698-6 (Version None)
Quarter: 2010Q2

REPORT INFORMATION
  Report Type: 
  Country: None (occurrence: None)
  Receive Date: 20100419
  Receipt Date: 20100409
  Transmission Date: 20101027
  Serious: Yes (Death, Hospitalization)
  Sender: FDA-Public Use
  Company Number: US-JNJFOC-20100400959

PATIENT
  Age: 66 Year
  Sex: Female

DRUGS (2)
  1. TYLENOL (CAPLET) [Suspect]
  2. TYLENOL (CAPLET) [Suspect]
     Indication: RHEUMATOID ARTHRITIS

REACTIONS (8)
  - ACUTE HEPATIC FAILURE [None]
  - DEATH [None]
  - DRUG TOXICITY [None]
  - HYPOGLYCAEMIA [None]
  - INTERNATIONAL NORMALISED RATIO INCREASED [None]
  - MENTAL STATUS CHANGES [None]
  - PRODUCT QUALITY ISSUE [None]
  - SEPSIS [None]
